FAERS Safety Report 9034103 (Version 1)
Quarter: 2013Q1

REPORT INFORMATION
  Report Type: Spontaneous
  Country: CA (occurrence: CA)
  Receive Date: 20130128
  Receipt Date: 20130128
  Transmission Date: 20140127
  Serious: Yes (Hospitalization, Other)
  Sender: FDA-Public Use
  Company Number: CA-AMGEN-CANSP2012060995

PATIENT
  Age: 69 Year
  Sex: Female
  Weight: 54.55 kg

DRUGS (5)
  1. PROLIA [Suspect]
     Indication: PRODUCT USED FOR UNKNOWN INDICATION
     Dosage: UNK
     Dates: start: 20110704
  2. VITAMIN B12                        /00056201/ [Concomitant]
     Dosage: UNK
  3. PREDNISONE [Concomitant]
     Dosage: UNK
  4. VITAMIN D /00107901/ [Concomitant]
     Dosage: 1000 IU, QD
  5. VITAMIN D /00107901/ [Concomitant]
     Dosage: 2000 IU, QD

REACTIONS (8)
  - Adrenocortical insufficiency acute [Unknown]
  - Balance disorder [Unknown]
  - Muscle atrophy [Unknown]
  - Bone density decreased [Unknown]
  - Weight decreased [Unknown]
  - Gait disturbance [Recovered/Resolved]
  - Renal disorder [Unknown]
  - Thyroid disorder [Unknown]
